FAERS Safety Report 21337494 (Version 1)
Quarter: 2022Q3

REPORT INFORMATION
  Report Type: Report from Study
  Country: US (occurrence: US)
  Receive Date: 20220915
  Receipt Date: 20220915
  Transmission Date: 20221027
  Serious: Yes (Death, Hospitalization, Other)
  Sender: FDA-Public Use
  Company Number: US-BRISTOL-MYERS SQUIBB COMPANY-2022-091553

PATIENT
  Age: 73 Year
  Sex: Male
  Weight: 110.5 kg

DRUGS (2)
  1. NIVOLUMAB [Suspect]
     Active Substance: NIVOLUMAB
     Indication: Cutaneous T-cell lymphoma
     Route: 065
     Dates: start: 20220615, end: 20220711
  2. DUVELISIB [Suspect]
     Active Substance: DUVELISIB
     Indication: Cutaneous T-cell lymphoma
     Route: 065
     Dates: start: 20220615, end: 20220731

REACTIONS (2)
  - Acute kidney injury [Not Recovered/Not Resolved]
  - Death [Fatal]

NARRATIVE: CASE EVENT DATE: 20220801
